FAERS Safety Report 4617202-1 (Version None)
Quarter: 2005Q1

REPORT INFORMATION
  Report Type: 
  Country: None (occurrence: None)
  Receive Date: 20050323
  Receipt Date: 20050316
  Transmission Date: 20050727
  Serious: Yes (Death, Other)
  Sender: FDA-Public Use
  Company Number: PHBS2005HK04058

PATIENT
  Age: 76 Year
  Sex: Female

DRUGS (3)
  1. IMATINIB [Suspect]
     Indication: CHRONIC MYELOID LEUKAEMIA
     Dosage: 600 MG/D
     Route: 065
  2. IMATINIB [Suspect]
     Dosage: 200 MG/D
     Route: 065
  3. DEFEROXAMINE [Concomitant]
     Dosage: 4 G/D
     Route: 065

REACTIONS (8)
  - DRY SKIN [None]
  - HIRSUTISM [None]
  - MALIGNANT NEOPLASM PROGRESSION [None]
  - NAUSEA [None]
  - PANCYTOPENIA [None]
  - PORPHYRIA NON-ACUTE [None]
  - SERUM FERRITIN INCREASED [None]
  - SKIN DISCOLOURATION [None]
